FAERS Safety Report 24103396 (Version 3)
Quarter: 2024Q4

REPORT INFORMATION
  Report Type: Spontaneous
  Country: US (occurrence: US)
  Receive Date: 20240717
  Receipt Date: 20241010
  Transmission Date: 20250114
  Serious: No
  Sender: ALEXION PHARMACEUTICALS
  Company Number: 2024A159151

PATIENT
  Age: 51 Year

DRUGS (2)
  1. BYDUREON BCISE [Suspect]
     Active Substance: EXENATIDE
     Dosage: MG WEEK
  2. BYDUREON BCISE [Suspect]
     Active Substance: EXENATIDE
     Dosage: MG WEEK

REACTIONS (5)
  - Malaise [Unknown]
  - Drug dose omission by device [Unknown]
  - Device use issue [Unknown]
  - Device malfunction [Unknown]
  - Wrong technique in device usage process [Unknown]
